FAERS Safety Report 10168907 (Version 1)
Quarter: 2014Q2

REPORT INFORMATION
  Report Type: Spontaneous
  Country: US (occurrence: None)
  Receive Date: 20140512
  Receipt Date: 20140512
  Transmission Date: 20141212
  Serious: Yes (Other)
  Sender: FDA-Public Use
  Company Number: None

PATIENT
  Age: 56 Year
  Sex: Female
  Weight: 68.49 kg

DRUGS (8)
  1. LEVOFLOXACIN [Suspect]
     Indication: ACUTE SINUSITIS
     Route: 048
     Dates: start: 20131231, end: 20140109
  2. CALCIUM [Concomitant]
  3. ASTELIN [Concomitant]
  4. LEVAQUIN [Concomitant]
  5. SIMVASTATIN [Concomitant]
  6. FLUTICASONE PROPIONATE [Concomitant]
  7. PROMETHAZINE HCL [Concomitant]
  8. MUCINEX [Concomitant]

REACTIONS (3)
  - Cardiac murmur [None]
  - Mitral valve incompetence [None]
  - Chordae tendinae rupture [None]
